FAERS Safety Report 13273312 (Version 1)
Quarter: 2017Q1

REPORT INFORMATION
  Report Type: Spontaneous
  Country: US (occurrence: US)
  Receive Date: 20170227
  Receipt Date: 20170227
  Transmission Date: 20170428
  Serious: Yes (Other)
  Sender: FDA-Public Use
  Company Number: None

PATIENT
  Age: 83 Year
  Sex: Female
  Weight: 62.55 kg

DRUGS (10)
  1. NIFEDIPINE EXTENDED RELEASE (XL) [Concomitant]
  2. AREDS 2 [Concomitant]
     Active Substance: MINERALS\VITAMINS
  3. PROPRANOLOL HCL ER [Concomitant]
  4. ALLOPURINOL. [Concomitant]
     Active Substance: ALLOPURINOL
  5. ALPRAZOLAM. [Concomitant]
     Active Substance: ALPRAZOLAM
  6. MULTI-VITAMIN [Concomitant]
     Active Substance: .ALPHA.-TOCOPHEROL ACETATE, DL-\ASCORBIC ACID\CYANOCOBALAMIN\FLUORIDE ION\FOLIC ACID\NIACIN\PYRIDOXINE\RIBOFLAVIN\THIAMINE\VITAMIN A\VITAMIN D
  7. NEIL CLEANSE WOUND WASH ANTISEPTIC STERILE SALINE WITH BENZALKONIUM CHLORIDE NEILMED [Suspect]
     Active Substance: BENZALKONIUM CHLORIDE
  8. LOW-DOSE ASPIRIN [Concomitant]
     Active Substance: ASPIRIN
  9. NEILMED WOUND WASH [Suspect]
     Active Substance: SODIUM CHLORIDE
     Indication: WOUND
     Route: 061
     Dates: start: 20161116, end: 20161116
  10. HYDROXYUREA. [Concomitant]
     Active Substance: HYDROXYUREA

REACTIONS (2)
  - Hypersensitivity [None]
  - Skin exfoliation [None]

NARRATIVE: CASE EVENT DATE: 20161116
